FAERS Safety Report 12253652 (Version 2)
Quarter: 2016Q2

REPORT INFORMATION
  Report Type: Report from Study
  Country: FR (occurrence: FR)
  Receive Date: 20160411
  Receipt Date: 20160517
  Transmission Date: 20160815
  Serious: Yes (Hospitalization, Disabling, Other)
  Sender: FDA-Public Use
  Company Number: FR-BIOGEN-2012BI050741

PATIENT
  Age: 47 Year
  Sex: Female
  Weight: 68 kg

DRUGS (4)
  1. LIORESAL [Concomitant]
     Active Substance: BACLOFEN
     Indication: PRODUCT USED FOR UNKNOWN INDICATION
     Route: 048
  2. DEROXAT [Concomitant]
     Active Substance: PAROXETINE HYDROCHLORIDE
     Route: 048
     Dates: end: 20121120
  3. MODIODAL [Concomitant]
     Active Substance: MODAFINIL
     Indication: FATIGUE
     Route: 048
  4. TYSABRI [Suspect]
     Active Substance: NATALIZUMAB
     Indication: MULTIPLE SCLEROSIS
     Route: 042
     Dates: start: 20080527, end: 20121012

REACTIONS (2)
  - Progressive multifocal leukoencephalopathy [Recovered/Resolved with Sequelae]
  - Immune reconstitution inflammatory syndrome [Not Recovered/Not Resolved]

NARRATIVE: CASE EVENT DATE: 20121102
